FAERS Safety Report 8382981-7 (Version None)
Quarter: 2012Q2

REPORT INFORMATION
  Report Type: 
  Country: None (occurrence: None)
  Receive Date: 20120524
  Receipt Date: 20120510
  Transmission Date: 20120825
  Serious: Yes (Other)
  Sender: FDA-Public Use
  Company Number: CA-JNJFOC-20120511591

PATIENT
  Age: 46 Year
  Sex: Male

DRUGS (10)
  1. VALPROIC ACID [Suspect]
     Route: 065
     Dates: start: 20101201, end: 20110201
  2. VALPROIC ACID [Suspect]
     Indication: CONVULSION
     Route: 065
     Dates: start: 20080101, end: 20101001
  3. VALPROIC ACID [Suspect]
     Route: 065
     Dates: start: 20070601, end: 20071001
  4. CLOBAZAM [Interacting]
     Indication: CONVULSION
     Route: 065
     Dates: start: 20080101, end: 20080801
  5. CLOBAZAM [Interacting]
     Route: 065
     Dates: start: 20081001, end: 20101001
  6. ETRAVIRINE [Suspect]
     Indication: ANTIVIRAL TREATMENT
     Route: 065
  7. RALTEGRAVIR [Suspect]
     Indication: ANTIVIRAL TREATMENT
     Route: 065
  8. LOPINAVIR/RITONAVIR [Suspect]
     Indication: ANTIVIRAL TREATMENT
     Route: 065
  9. EMTRICITABINE/TENOFOVIR DISOPROXIL FUMARATE [Suspect]
     Indication: ANTIVIRAL TREATMENT
     Route: 065
  10. CLOBAZAM [Interacting]
     Route: 065
     Dates: start: 20101201, end: 20110201

REACTIONS (6)
  - GAIT DISTURBANCE [None]
  - DYSARTHRIA [None]
  - DRUG LEVEL INCREASED [None]
  - SOMNOLENCE [None]
  - DRUG INTERACTION [None]
  - ASTHENIA [None]
